FAERS Safety Report 25611588 (Version 1)
Quarter: 2025Q3

REPORT INFORMATION
  Report Type: Report from Study
  Country: US (occurrence: US)
  Receive Date: 20250728
  Receipt Date: 20250728
  Transmission Date: 20251020
  Serious: Yes (Death)
  Sender: ALEXION PHARMACEUTICALS
  Company Number: US-AstraZeneca-CH-00918797A

PATIENT
  Sex: Female

DRUGS (1)
  1. GLYCOPYRRONIUM\FORMOTEROL FUMARATE [Suspect]
     Active Substance: GLYCOPYRRONIUM\FORMOTEROL FUMARATE
     Indication: Product used for unknown indication
     Dosage: 2 ?G/INHALATION

REACTIONS (1)
  - Death [Fatal]
